FAERS Safety Report 10032431 (Version 1)
Quarter: 2014Q1

REPORT INFORMATION
  Report Type: Spontaneous
  Country: AU (occurrence: None)
  Receive Date: 20140320
  Receipt Date: 20140320
  Transmission Date: 20141002
  Serious: Yes (Hospitalization)
  Sender: FDA-Public Use
  Company Number: 2014-AU-000009

PATIENT
  Age: 86 Year
  Sex: Female
  Weight: 72 kg

DRUGS (3)
  1. DOXYCYCLINE [Suspect]
     Indication: BRONCHITIS
     Dates: start: 20130101
  2. PANTOPRAZOLE [Suspect]
  3. AMOXICILLIN AND CLAVULANATE [Suspect]
     Indication: BRONCHITIS
     Dates: start: 20131001

REACTIONS (1)
  - Pancreatitis [None]
